FAERS Safety Report 15186809 (Version 1)
Quarter: 2018Q3

REPORT INFORMATION
  Report Type: Report from Study
  Country: US (occurrence: US)
  Receive Date: 20180723
  Receipt Date: 20180723
  Transmission Date: 20181010
  Serious: No
  Sender: FDA-Public Use
  Company Number: US-EXELIXIS-CABO-18012496

PATIENT
  Sex: Male

DRUGS (15)
  1. OXYCODONE [Concomitant]
     Active Substance: OXYCODONE
  2. ALBUTEROL. [Concomitant]
     Active Substance: ALBUTEROL
  3. ALDACTONE [Concomitant]
     Active Substance: SPIRONOLACTONE
  4. CABOMETYX [Suspect]
     Active Substance: CABOZANTINIB S-MALATE
     Indication: RENAL CANCER
     Dosage: 60 MG, QD
     Route: 048
     Dates: start: 20180118
  5. VALIUM [Concomitant]
     Active Substance: DIAZEPAM
  6. CITALOPRAM [Concomitant]
     Active Substance: CITALOPRAM HYDROBROMIDE
  7. FLOVENT [Concomitant]
     Active Substance: FLUTICASONE PROPIONATE
  8. FUROSEMIDE. [Concomitant]
     Active Substance: FUROSEMIDE
  9. DURAGESIC [Concomitant]
     Active Substance: FENTANYL
  10. ZOLPIDEM TARTATE [Concomitant]
     Active Substance: ZOLPIDEM TARTRATE
  11. KLOR?CON [Concomitant]
     Active Substance: POTASSIUM CHLORIDE
  12. CALCIUM +VIT D [Concomitant]
     Active Substance: CALCIUM\VITAMIN D
  13. FLEXERIL [Concomitant]
     Active Substance: CYCLOBENZAPRINE HYDROCHLORIDE
  14. VALTREX [Concomitant]
     Active Substance: VALACYCLOVIR HYDROCHLORIDE
  15. TESSALON [Concomitant]
     Active Substance: BENZONATATE

REACTIONS (1)
  - Hepatic function abnormal [Unknown]
